FAERS Safety Report 15680339 (Version 2)
Quarter: 2019Q1

REPORT INFORMATION
  Report Type: Spontaneous
  Country: US (occurrence: US)
  Receive Date: 20181203
  Receipt Date: 20190103
  Transmission Date: 20190417
  Serious: No
  Sender: FDA-Public Use
  Company Number: US-JNJFOC-20181122972

PATIENT
  Age: 66 Year
  Sex: Male
  Weight: 113.85 kg

DRUGS (2)
  1. XARELTO [Suspect]
     Active Substance: RIVAROXABAN
     Indication: CEREBROVASCULAR ACCIDENT PROPHYLAXIS
     Route: 048
     Dates: start: 2018
  2. XARELTO [Suspect]
     Active Substance: RIVAROXABAN
     Indication: ATRIAL FIBRILLATION
     Route: 048
     Dates: start: 2018

REACTIONS (5)
  - Product label issue [Unknown]
  - Dry skin [Unknown]
  - Skin haemorrhage [Recovered/Resolved]
  - Tooth injury [Not Recovered/Not Resolved]
  - Tooth socket haemorrhage [Not Recovered/Not Resolved]

NARRATIVE: CASE EVENT DATE: 201811
